FAERS Safety Report 5879741-5 (Version None)
Quarter: 2008Q3

REPORT INFORMATION
  Report Type: 
  Country: None (occurrence: None)
  Receive Date: 20080912
  Receipt Date: 20080903
  Transmission Date: 20090109
  Serious: Yes (Other)
  Sender: FDA-Public Use
  Company Number: JP-ASTRAZENECA-2008AP07004

PATIENT
  Age: 82 Year
  Sex: Male

DRUGS (5)
  1. OMEPRAL TABLETS [Suspect]
     Dosage: NUMBER OF SEPARATE DOSAGES UNKNOWN
     Route: 048
     Dates: start: 20070709, end: 20070724
  2. MELOXICAM [Interacting]
     Dosage: NUMBER OF SEPARATE DOSAGES UNKNOWN
     Route: 048
     Dates: start: 20070713, end: 20070731
  3. WARFARIN SODIUM [Interacting]
     Dosage: NUMBER OF SEPARATE DOSAGES UNKNOWN
     Route: 048
     Dates: start: 20070719, end: 20070723
  4. WARFARIN SODIUM [Interacting]
     Dates: start: 20070924, end: 20070101
  5. UNKNOWNDRUG [Concomitant]
     Dosage: NUMBER OF SEPARATE DOSAGES UNKNOWN
     Route: 041
     Dates: start: 20070713, end: 20070725

REACTIONS (9)
  - DRUG INTERACTION [None]
  - DYSPNOEA [None]
  - HAEMORRHAGIC DIATHESIS [None]
  - INTERNATIONAL NORMALISED RATIO INCREASED [None]
  - LYMPHOEDEMA [None]
  - METASTASES TO LYMPH NODES [None]
  - OEDEMA PERIPHERAL [None]
  - PULMONARY EMBOLISM [None]
  - SCROTAL OEDEMA [None]
